FAERS Safety Report 8281826-3 (Version None)
Quarter: 2012Q2

REPORT INFORMATION
  Report Type: 
  Country: None (occurrence: None)
  Receive Date: 20120413
  Receipt Date: 20120408
  Transmission Date: 20120825
  Serious: Yes (Other)
  Sender: FDA-Public Use
  Company Number: PHHY2012MX030404

PATIENT
  Sex: Male

DRUGS (2)
  1. EXFORGE [Suspect]
     Indication: HYPERTENSION
     Dosage: 1 DF X (160/5 MG), DAILY
     Dates: start: 20111001
  2. ATIVAN [Concomitant]
     Dosage: UNK UKN, UNK

REACTIONS (3)
  - DECREASED APPETITE [None]
  - AMNESIA [None]
  - BLOOD PRESSURE DECREASED [None]
